FAERS Safety Report 23677397 (Version 2)
Quarter: 2024Q1

REPORT INFORMATION
  Report Type: Spontaneous
  Country: NO (occurrence: NO)
  Receive Date: 20240327
  Receipt Date: 20240328
  Transmission Date: 20240410
  Serious: Yes (Hospitalization)
  Sender: FDA-Public Use
  Company Number: None

PATIENT
  Age: 51 Year
  Sex: Female

DRUGS (3)
  1. ESTRADIOL [Suspect]
     Active Substance: ESTRADIOL
     Indication: Menopausal symptoms
     Dosage: UNK (CHANGE OF PATCH TWICE PER WEEK.STRENGTH: 50 ?G/24 HOURS)
     Route: 062
     Dates: start: 202401, end: 202401
  2. MIRABEGRON [Concomitant]
     Active Substance: MIRABEGRON
     Indication: Urge incontinence
     Dosage: DEPOTTAB 25 MG(G04BD12 - MIRABEGRON - ONGOING TREATMENT)
     Route: 065
     Dates: start: 202310
  3. ALBUTEROL [Concomitant]
     Active Substance: ALBUTEROL
     Indication: Dyspnoea
     Dosage: INH PULV, DISP 0,2 MG/DOSE(R03AC02 - SALBUTAMOL - ONGOING TREATMENT)
     Route: 065

REACTIONS (2)
  - Obstructive airways disorder [Recovered/Resolved with Sequelae]
  - Dysphonia [Recovered/Resolved with Sequelae]

NARRATIVE: CASE EVENT DATE: 20240101
